FAERS Safety Report 4499772-X (Version None)
Quarter: 2004Q4

REPORT INFORMATION
  Report Type: 
  Country: None (occurrence: None)
  Receive Date: 20041112
  Receipt Date: 20041102
  Transmission Date: 20050328
  Serious: Yes (Hospitalization)
  Sender: FDA-Public Use
  Company Number: JP-ABBOTT-04P-087-0279578-00

PATIENT
  Age: 65 Year
  Sex: Male
  Weight: 62 kg

DRUGS (10)
  1. SEVOFLURANE LIQUID FOR INHALATION [Suspect]
     Indication: ANAESTHESIA
     Route: 055
  2. SEVOFLURANE LIQUID FOR INHALATION [Suspect]
     Route: 055
  3. THIOPENTAL SODIUM [Concomitant]
     Indication: ANAESTHESIA
  4. VECURONIUM BROMIDE [Concomitant]
     Indication: ANAESTHESIA
  5. NITROUS OXIDE W/ OXYGEN [Concomitant]
     Indication: ANAESTHESIA
  6. OXYGEN [Concomitant]
     Indication: ANAESTHESIA
     Route: 055
  7. CRYSTALLOID SOLUTION [Concomitant]
     Indication: DRUG USE FOR UNKNOWN INDICATION
     Route: 042
  8. PLASMANATE [Concomitant]
     Indication: DRUG USE FOR UNKNOWN INDICATION
     Route: 042
  9. MAP [Concomitant]
     Indication: DRUG USE FOR UNKNOWN INDICATION
  10. PLASMA PROTEIN FRACTION (HUMAN) [Concomitant]
     Indication: DRUG USE FOR UNKNOWN INDICATION
     Route: 042

REACTIONS (11)
  - BLOOD PRESSURE INCREASED [None]
  - CHILLS [None]
  - FEELING COLD [None]
  - HEART RATE INCREASED [None]
  - HYPERTHERMIA MALIGNANT [None]
  - INFECTION [None]
  - METABOLIC ACIDOSIS [None]
  - NERVOUS SYSTEM DISORDER [None]
  - PYREXIA [None]
  - RESPIRATORY ACIDOSIS [None]
  - SEDATION [None]
